FAERS Safety Report 25531346 (Version 3)
Quarter: 2025Q3

REPORT INFORMATION
  Report Type: Report from Study
  Country: CL (occurrence: CL)
  Receive Date: 20250708
  Receipt Date: 20250825
  Transmission Date: 20251020
  Serious: Yes (Other)
  Sender: JOHNSON AND JOHNSON
  Company Number: CL-JNJFOC-20250700876

PATIENT
  Sex: Female

DRUGS (2)
  1. SIMPONI [Suspect]
     Active Substance: GOLIMUMAB
     Indication: Rheumatoid arthritis
     Route: 058
     Dates: start: 20221017
  2. ATORVASTATIN [Concomitant]
     Active Substance: ATORVASTATIN
     Indication: Blood cholesterol

REACTIONS (10)
  - Hip surgery [Unknown]
  - Nephrolithiasis [Recovered/Resolved]
  - Gastrointestinal haemorrhage [Unknown]
  - Syncope [Recovered/Resolved]
  - Bacterial infection [Not Recovered/Not Resolved]
  - Hypercholesterolaemia [Recovering/Resolving]
  - Cerebrovascular disorder [Recovering/Resolving]
  - Pain in extremity [Unknown]
  - Abdominal pain [Unknown]
  - Blood pressure abnormal [Recovered/Resolved]

NARRATIVE: CASE EVENT DATE: 20240101
